FAERS Safety Report 14807464 (Version 1)
Quarter: 2018Q2

REPORT INFORMATION
  Report Type: Report from Study
  Country: US (occurrence: US)
  Receive Date: 20180425
  Receipt Date: 20180425
  Transmission Date: 20180711
  Serious: Yes (Hospitalization)
  Sender: FDA-Public Use
  Company Number: US-EXELIXIS-CABO-18013594

PATIENT
  Age: 60 Year
  Sex: Male
  Weight: 92.97 kg

DRUGS (3)
  1. NYSTATIN. [Concomitant]
     Active Substance: NYSTATIN
  2. BENADRYL [Concomitant]
     Active Substance: DIPHENHYDRAMINE HYDROCHLORIDE
  3. CABOMETYX [Suspect]
     Active Substance: CABOZANTINIB S-MALATE
     Indication: RENAL CANCER
     Dosage: 60 MG, QD
     Route: 048
     Dates: start: 201801

REACTIONS (9)
  - Pneumonia [Unknown]
  - Orthostatic hypotension [Unknown]
  - Mental status changes [Unknown]
  - Fatigue [Unknown]
  - Sepsis [Unknown]
  - Stomatitis [Unknown]
  - Dysgeusia [Unknown]
  - Balance disorder [Unknown]
  - Fall [Unknown]

NARRATIVE: CASE EVENT DATE: 20180330
